FAERS Safety Report 8504830-6 (Version None)
Quarter: 2012Q3

REPORT INFORMATION
  Report Type: 
  Country: None (occurrence: None)
  Receive Date: 20120712
  Receipt Date: 20120706
  Transmission Date: 20120928
  Serious: Yes (Hospitalization)
  Sender: FDA-Public Use
  Company Number: JP-009507513-1207JPN000068

PATIENT

DRUGS (11)
  1. TELAPREVIR [Concomitant]
     Indication: HEPATITIS C
     Route: 048
     Dates: start: 20120326, end: 20120415
  2. PEG-INTRON [Suspect]
     Dosage: 1.5MCG/KG/WEEK
     Route: 058
     Dates: start: 20120326
  3. REBETOL [Suspect]
     Dosage: 600 MG, UNK
     Dates: start: 20120416, end: 20120430
  4. REBETOL [Suspect]
     Dosage: 200 MG, UNK
     Route: 048
     Dates: start: 20120509
  5. REBETOL [Suspect]
     Indication: HEPATITIS C
     Route: 048
     Dates: start: 20120326, end: 20120415
  6. COSPANON [Concomitant]
     Route: 048
  7. SEROQUEL [Concomitant]
     Indication: INSOMNIA
     Route: 048
     Dates: start: 20120401
  8. REBETOL [Suspect]
     Dosage: 400 MG, UNK
     Dates: start: 20120501, end: 20120508
  9. TELAPREVIR [Concomitant]
     Route: 048
     Dates: start: 20120416, end: 20120618
  10. URSO 250 [Concomitant]
     Indication: HEPATITIS C
     Route: 048
  11. [THERAPY UNSPECIFIED] [Concomitant]
     Dosage: 500MG/DAY, AS NEEDED
     Route: 048
     Dates: start: 20120326

REACTIONS (1)
  - PANCREATITIS ACUTE [None]
